FAERS Safety Report 20684970 (Version 1)
Quarter: 2022Q2

REPORT INFORMATION
  Report Type: Spontaneous
  Country: US (occurrence: None)
  Receive Date: 20220405
  Receipt Date: 20220405
  Transmission Date: 20220720
  Serious: Yes (Hospitalization)
  Sender: FDA-Public Use
  Company Number: None

PATIENT
  Age: 17 Year
  Sex: Female

DRUGS (1)
  1. DEFERASIROX [Suspect]
     Active Substance: DEFERASIROX
     Indication: Thalassaemia
     Dosage: FREQUENCY : DAILY;?
     Route: 048
     Dates: start: 2017

REACTIONS (4)
  - Constipation [None]
  - Vomiting [None]
  - Food poisoning [None]
  - Serum ferritin decreased [None]

NARRATIVE: CASE EVENT DATE: 20220329
